FAERS Safety Report 7213721-2 (Version None)
Quarter: 2011Q1

REPORT INFORMATION
  Report Type: 
  Country: None (occurrence: None)
  Receive Date: 20110106
  Receipt Date: 20101229
  Transmission Date: 20110831
  Serious: Yes (Other)
  Sender: FDA-Public Use
  Company Number: ES-GILEAD-2010-0034476

PATIENT
  Age: 34 Year
  Sex: Female

DRUGS (5)
  1. TRUVADA [Suspect]
     Indication: PRODUCT USED FOR UNKNOWN INDICATION
     Route: 048
     Dates: start: 20080930
  2. PREZISTA [Concomitant]
     Route: 048
     Dates: start: 20080930
  3. NORVIR [Concomitant]
     Route: 048
     Dates: start: 20080930
  4. COMBIVIR [Concomitant]
     Dates: start: 20100318
  5. ISENTRESS [Concomitant]
     Route: 048
     Dates: start: 20080930

REACTIONS (2)
  - PREMATURE LABOUR [None]
  - PREMATURE RUPTURE OF MEMBRANES [None]
